FAERS Safety Report 10072594 (Version 1)
Quarter: 2014Q2

REPORT INFORMATION
  Report Type: Report from Study
  Country: CA (occurrence: CA)
  Receive Date: 20140411
  Receipt Date: 20140411
  Transmission Date: 20141212
  Serious: Yes (Hospitalization)
  Sender: FDA-Public Use
  Company Number: CA-JNJFOC-20140404250

PATIENT
  Age: 17 Year
  Sex: Male

DRUGS (5)
  1. REMICADE [Suspect]
     Indication: CROHN^S DISEASE
     Dosage: SEVENTH INFUSION
     Route: 042
     Dates: start: 20140403
  2. REMICADE [Suspect]
     Indication: CROHN^S DISEASE
     Route: 042
     Dates: start: 20130625
  3. AZATHIOPRINE [Concomitant]
     Route: 065
  4. IRON [Concomitant]
     Route: 065
  5. CALCIUM [Concomitant]
     Route: 065

REACTIONS (3)
  - Small intestinal resection [Recovered/Resolved]
  - Increased appetite [Unknown]
  - Pain [Recovering/Resolving]
